FAERS Safety Report 6116215-0 (Version None)
Quarter: 2009Q1

REPORT INFORMATION
  Report Type: 
  Country: None (occurrence: None)
  Receive Date: 20090314
  Receipt Date: 20081203
  Transmission Date: 20090719
  Serious: No
  Sender: FDA-Public Use
  Company Number: US-ABBOTT-08P-163-0490747-00

PATIENT
  Sex: Male
  Weight: 79.904 kg

DRUGS (7)
  1. HUMIRA [Suspect]
     Indication: RHEUMATOID ARTHRITIS
     Route: 058
     Dates: start: 20060801
  2. METHOTREXATE [Concomitant]
     Indication: RHEUMATOID ARTHRITIS
     Route: 048
  3. FOLIC ACID [Concomitant]
     Indication: VITAMIN SUPPLEMENTATION
     Route: 048
  4. ZIPRASIDONE HYDROCHLORIDE [Concomitant]
     Indication: BIPOLAR DISORDER
     Route: 048
  5. LAMOTRIGINE [Concomitant]
     Indication: BIPOLAR DISORDER
     Route: 048
  6. MEMANTINE HYDROCHLORIDE [Concomitant]
     Indication: BIPOLAR DISORDER
  7. OLANZAPINE [Concomitant]
     Indication: BIPOLAR DISORDER
     Route: 048

REACTIONS (2)
  - DRUG DELIVERY SYSTEM MALFUNCTION [None]
  - INCORRECT DOSE ADMINISTERED [None]
